FAERS Safety Report 4424738-5 (Version None)
Quarter: 2004Q3

REPORT INFORMATION
  Report Type: 
  Country: None (occurrence: None)
  Receive Date: 20040805
  Receipt Date: 20040726
  Transmission Date: 20050211
  Serious: Yes (Life-Threatening, Hospitalization)
  Sender: FDA-Public Use
  Company Number: STA-AE-04-MTX-332

PATIENT
  Age: 56 Year
  Sex: Female

DRUGS (7)
  1. METHOTREXATE [Suspect]
     Indication: RHEUMATOID ARTHRITIS
     Dosage: 2.5 MG 6X PER 1 DAY, ORAL
     Route: 048
     Dates: start: 20040408, end: 20040423
  2. OMEPRAZOLE [Concomitant]
  3. SULFARLEM (ANETHOLE TRITHIONE) [Concomitant]
  4. SOLIAN (AMSULPRIDE) [Concomitant]
  5. FORADIL [Concomitant]
  6. ARTANE (TRIHYXYPHENIDYL) [Concomitant]
  7. INDOMETHACIN [Concomitant]

REACTIONS (8)
  - ACCIDENTAL OVERDOSE [None]
  - ANAEMIA [None]
  - GAMMA-GLUTAMYLTRANSFERASE INCREASED [None]
  - GLOSSITIS [None]
  - INFECTION [None]
  - MEDICATION ERROR [None]
  - NEUTROPENIA [None]
  - TONSILLITIS [None]
